FAERS Safety Report 4836406-6 (Version None)
Quarter: 2005Q4

REPORT INFORMATION
  Report Type: 
  Country: None (occurrence: None)
  Receive Date: 20051123
  Receipt Date: 20050908
  Transmission Date: 20060501
  Serious: Yes (Hospitalization, Other)
  Sender: FDA-Public Use
  Company Number: GBWYE965008SEP05

PATIENT
  Sex: Female

DRUGS (3)
  1. ENBREL [Suspect]
     Indication: RHEUMATOID ARTHRITIS
     Route: 058
     Dates: start: 20050501, end: 20050819
  2. LEVOTHYROXINE SODIUM [Concomitant]
     Route: 065
     Dates: start: 19910901
  3. DIHYDROCODEINE [Concomitant]
     Route: 065
     Dates: start: 20050301

REACTIONS (5)
  - DEEP VEIN THROMBOSIS [None]
  - DIARRHOEA [None]
  - DIZZINESS [None]
  - MALAISE [None]
  - PANCREATIC CARCINOMA [None]
